FAERS Safety Report 21783945 (Version 1)
Quarter: 2022Q4

REPORT INFORMATION
  Report Type: Spontaneous
  Country: DK (occurrence: DK)
  Receive Date: 20221227
  Receipt Date: 20221227
  Transmission Date: 20230113
  Serious: Yes (Other)
  Sender: FDA-Public Use
  Company Number: None

PATIENT
  Age: 40 Year
  Sex: Female
  Weight: 62 kg

DRUGS (2)
  1. ETHINYL ESTRADIOL\LEVONORGESTREL [Suspect]
     Active Substance: ETHINYL ESTRADIOL\LEVONORGESTREL
     Indication: Contraception
     Dosage: STRENGTH: 0.15 + 0.03 MG.
     Route: 048
     Dates: start: 20210716, end: 20210801
  2. PROVERA [Suspect]
     Active Substance: MEDROXYPROGESTERONE ACETATE
     Indication: Menstruation irregular
     Dosage: STRENGTH: 5 MG.
     Route: 048
     Dates: start: 20210531, end: 20210717

REACTIONS (4)
  - Nausea [Recovered/Resolved]
  - Abdominal pain [Recovered/Resolved]
  - Oedema [Recovered/Resolved]
  - Ascites [Unknown]

NARRATIVE: CASE EVENT DATE: 20210101
